FAERS Safety Report 8698743 (Version 2)
Quarter: 2012Q4

REPORT INFORMATION
  Report Type: 
  Country: US (occurrence: US)
  Receive Date: 20120802
  Receipt Date: 20121031
  Transmission Date: 20130627
  Serious: No
  Sender: FDA-Public Use
  Company Number: US-US-EMD SERONO, INC.-7150594

PATIENT
  Sex: Female
  Weight: 68 kg

DRUGS (8)
  1. REBIF [Suspect]
     Indication: PRODUCT USED FOR UNKNOWN INDICATION
     Route: 058
  2. EFFEXOR [Concomitant]
     Indication: PRODUCT USED FOR UNKNOWN INDICATION
  3. MELOXICAM [Concomitant]
     Indication: PRODUCT USED FOR UNKNOWN INDICATION
  4. GABAPENTIN [Concomitant]
     Indication: PRODUCT USED FOR UNKNOWN INDICATION
  5. BACLOFEN [Concomitant]
     Indication: PRODUCT USED FOR UNKNOWN INDICATION
  6. VITAMIN D [Concomitant]
     Indication: PRODUCT USED FOR UNKNOWN INDICATION
  7. ABILIFY [Concomitant]
     Indication: PRODUCT USED FOR UNKNOWN INDICATION
  8. PROVIGIL [Concomitant]
     Indication: PRODUCT USED FOR UNKNOWN INDICATION

REACTIONS (21)
  - Dyskinesia [Unknown]
  - Vertigo [Unknown]
  - Amnesia [Unknown]
  - Speech disorder [Unknown]
  - Anxiety [Unknown]
  - Sleep disorder [Unknown]
  - Increased tendency to bruise [Unknown]
  - Photosensitivity reaction [Unknown]
  - Sensory disturbance [Unknown]
  - Neck pain [Unknown]
  - Asthenia [Unknown]
  - Back pain [Unknown]
  - Vision blurred [Unknown]
  - Paraesthesia [Unknown]
  - Pain in extremity [Unknown]
  - Myalgia [Unknown]
  - Depression [Unknown]
  - Influenza like illness [Recovered/Resolved]
  - Fatigue [Unknown]
  - Headache [Unknown]
  - Injection site reaction [Unknown]
